FAERS Safety Report 5920167-3 (Version None)
Quarter: 2008Q4

REPORT INFORMATION
  Report Type: 
  Country: None (occurrence: None)
  Receive Date: 20081016
  Receipt Date: 20081013
  Transmission Date: 20090506
  Serious: Yes (Hospitalization)
  Sender: FDA-Public Use
  Company Number: DE-WYE-G01891208

PATIENT
  Sex: Female
  Weight: 50 kg

DRUGS (3)
  1. TREVILOR RETARD [Suspect]
     Dosage: MAX. 6 CAPSULES (OVERDOSE AMOUNT MAX. 450 MG)
     Route: 048
     Dates: start: 20080721, end: 20080721
  2. TRIMIPRAMINE MALEATE [Suspect]
     Dosage: MAX. 3 TABLETS (AMOUNT MAX. 150 MG)
     Route: 048
     Dates: start: 20080721, end: 20080721
  3. ALCOHOL [Suspect]
     Dosage: OVERDOSE AMOUNT UNKNOWN
     Route: 048
     Dates: start: 20080721, end: 20080721

REACTIONS (7)
  - COMA [None]
  - CONVULSION [None]
  - DRUG ABUSE [None]
  - INTENTIONAL OVERDOSE [None]
  - MYDRIASIS [None]
  - SOPOR [None]
  - TACHYCARDIA [None]
